FAERS Safety Report 17817108 (Version 1)
Quarter: 2020Q2

REPORT INFORMATION
  Report Type: Spontaneous
  Country: CA (occurrence: CA)
  Receive Date: 20200522
  Receipt Date: 20200522
  Transmission Date: 20200714
  Serious: Yes (Hospitalization)
  Sender: FDA-Public Use
  Company Number: CA-CELGENEUS-CAN-20200506218

PATIENT
  Sex: Female

DRUGS (1)
  1. REVLIMID [Suspect]
     Active Substance: LENALIDOMIDE
     Indication: PLASMA CELL MYELOMA
     Dosage: 15 MILLIGRAM
     Route: 048
     Dates: start: 20200330, end: 20200330

REACTIONS (5)
  - Tremor [Unknown]
  - Rash [Unknown]
  - Dizziness [Unknown]
  - Viral infection [Unknown]
  - Haemoptysis [Unknown]

NARRATIVE: CASE EVENT DATE: 2020
